FAERS Safety Report 5471399-2 (Version None)
Quarter: 2007Q3

REPORT INFORMATION
  Report Type: 
  Country: None (occurrence: None)
  Receive Date: 20070928
  Receipt Date: 20060928
  Transmission Date: 20080115
  Serious: No
  Sender: FDA-Public Use
  Company Number: US-BRISTOL-MYERS SQUIBB COMPANY-13525019

PATIENT
  Age: 85 Year
  Sex: Male

DRUGS (6)
  1. DEFINITY [Suspect]
     Indication: STRESS ECHOCARDIOGRAM
     Dates: start: 20060926
  2. CARDIZEM [Concomitant]
  3. COUMADIN [Concomitant]
  4. LOPRESSOR [Concomitant]
  5. TYLENOL ARTHRITIS [Concomitant]
  6. DOBUTAMINE HCL [Concomitant]
     Dates: start: 20060926

REACTIONS (1)
  - BACK PAIN [None]
